FAERS Safety Report 9337160 (Version 1)
Quarter: 2013Q2

REPORT INFORMATION
  Report Type: Spontaneous
  Country: US (occurrence: US)
  Receive Date: 20130607
  Receipt Date: 20130607
  Transmission Date: 20140414
  Serious: No
  Sender: FDA-Public Use
  Company Number: US-PFIZER INC-2013171118

PATIENT
  Age: 38 Year
  Sex: Female

DRUGS (4)
  1. XELJANZ [Suspect]
     Indication: RHEUMATOID ARTHRITIS
     Dosage: 5 MG, 2X/DAY
     Route: 048
     Dates: start: 20130530
  2. FOLIC ACID [Concomitant]
     Dosage: 1 MG, UNK
  3. MOBIC [Concomitant]
     Dosage: 15 MG, UNK
  4. METHOTREXATE [Concomitant]
     Dosage: 1 GM/40 ML VAIL, UNK

REACTIONS (1)
  - Drug ineffective [Unknown]
